FAERS Safety Report 9066222 (Version 2)
Quarter: 2013Q1

REPORT INFORMATION
  Report Type: Spontaneous
  Country: IT (occurrence: IT)
  Receive Date: 20130214
  Receipt Date: 20130327
  Transmission Date: 20140127
  Serious: Yes (Hospitalization)
  Sender: FDA-Public Use
  Company Number: IT-SANOFI-AVENTIS-2013SA011573

PATIENT
  Age: 75 Year
  Sex: Male

DRUGS (7)
  1. PLAVIX [Suspect]
     Indication: PROPHYLAXIS
     Route: 048
     Dates: start: 20120201, end: 20121205
  2. CARDIOASPIRIN [Suspect]
     Indication: PROPHYLAXIS
     Dosage: STRENGTH: 100 MG
     Route: 048
     Dates: start: 20120201
  3. PANTOPRAZOLE SODIUM [Concomitant]
     Route: 048
  4. SPIRIVA [Concomitant]
  5. SERETIDE DISKUS [Concomitant]
     Dosage: STRENGTH: 50/100; DOSE: 2 POSOLOGIC UNITS
     Route: 055
  6. SINVACOR [Concomitant]
     Dosage: STRENGTH: 20 MG, DOSE: ONE POSOLOGIC UNIT
     Route: 048
  7. OMNIC [Concomitant]
     Dosage: STRENGTH: 0.4 MG; DOSE: ONE POSOLOGIC UNIT
     Route: 048

REACTIONS (3)
  - Gastrointestinal haemorrhage [Recovering/Resolving]
  - Anaemia [Recovering/Resolving]
  - Gastritis [Recovering/Resolving]
